FAERS Safety Report 8379834-7 (Version None)
Quarter: 2012Q2

REPORT INFORMATION
  Report Type: 
  Country: None (occurrence: None)
  Receive Date: 20120523
  Receipt Date: 20120514
  Transmission Date: 20120825
  Serious: Yes (Other)
  Sender: FDA-Public Use
  Company Number: CA-JNJFOC-20120513292

PATIENT
  Sex: Female
  Weight: 85.4 kg

DRUGS (1)
  1. REMICADE [Suspect]
     Indication: CROHN'S DISEASE
     Route: 042
     Dates: start: 20051201

REACTIONS (2)
  - GALLBLADDER DISORDER [None]
  - ABDOMINAL PAIN UPPER [None]
